FAERS Safety Report 6774851-2 (Version None)
Quarter: 2010Q2

REPORT INFORMATION
  Report Type: 
  Country: None (occurrence: None)
  Receive Date: 20100616
  Receipt Date: 20100616
  Transmission Date: 20101027
  Serious: No
  Sender: FDA-Public Use
  Company Number: None

PATIENT
  Age: 39 Year
  Sex: Female
  Weight: 63.5036 kg

DRUGS (1)
  1. LEVAQUIN [Suspect]
     Indication: PNEUMONIA
     Dosage: 500MG 12 HOURS PO
     Route: 048
     Dates: start: 20070901, end: 20070920

REACTIONS (4)
  - ARTHRALGIA [None]
  - MUSCLE TWITCHING [None]
  - NEURALGIA [None]
  - TENDONITIS [None]
